FAERS Safety Report 7545738-2 (Version None)
Quarter: 2011Q2

REPORT INFORMATION
  Report Type: 
  Country: None (occurrence: None)
  Receive Date: 20110614
  Receipt Date: 20110531
  Transmission Date: 20111010
  Serious: Yes (Hospitalization)
  Sender: FDA-Public Use
  Company Number: CA-JNJFOC-20100803397

PATIENT
  Sex: Female
  Weight: 56 kg

DRUGS (1)
  1. REMICADE [Suspect]
     Indication: PSORIASIS
     Route: 042
     Dates: start: 20090901, end: 20100601

REACTIONS (3)
  - PSORIASIS [None]
  - ABASIA [None]
  - ARTHRALGIA [None]
